FAERS Safety Report 8903484 (Version 5)
Quarter: 2012Q4

REPORT INFORMATION
  Report Type: 
  Country: CH (occurrence: CH)
  Receive Date: 20121113
  Receipt Date: 20121228
  Transmission Date: 20130627
  Serious: Yes (Hospitalization, Other)
  Sender: FDA-Public Use
  Company Number: CH-JNJFOC-20121103911

PATIENT
  Age: 82 Year
  Sex: Female
  Weight: 66 kg

DRUGS (17)
  1. XARELTO [Suspect]
     Indication: HIP ARTHROPLASTY
     Route: 048
     Dates: start: 20120626, end: 20120822
  2. XARELTO [Suspect]
     Indication: HIP ARTHROPLASTY
     Route: 048
     Dates: start: 20120907, end: 20120908
  3. XARELTO [Suspect]
     Indication: THROMBOSIS PROPHYLAXIS
     Route: 048
     Dates: start: 20120626, end: 20120822
  4. XARELTO [Suspect]
     Indication: THROMBOSIS PROPHYLAXIS
     Route: 048
     Dates: start: 20120907, end: 20120908
  5. XARELTO [Suspect]
     Indication: ATRIAL FIBRILLATION
     Route: 048
     Dates: start: 20120907, end: 20120908
  6. XARELTO [Suspect]
     Indication: ATRIAL FIBRILLATION
     Route: 048
     Dates: start: 20120626, end: 20120822
  7. CITALOPRAM [Suspect]
     Indication: ANXIETY DISORDER
     Route: 048
  8. ZINACEF [Suspect]
     Indication: PROPHYLAXIS
     Route: 042
     Dates: start: 20120905, end: 20120905
  9. DAFALGAN [Suspect]
     Indication: PAIN
     Route: 048
     Dates: start: 20120905, end: 20120912
  10. NOVALGINE [Suspect]
     Indication: PRODUCT USED FOR UNKNOWN INDICATION
     Route: 048
     Dates: start: 20120905, end: 20120906
  11. FELODIPINE [Concomitant]
     Indication: ESSENTIAL HYPERTENSION
     Route: 048
  12. CO-RENITEN [Concomitant]
     Indication: ESSENTIAL HYPERTENSION
     Dosage: 1 dosage form

20/12.5
     Route: 048
  13. METOPROLOL [Concomitant]
     Indication: ESSENTIAL HYPERTENSION
     Route: 048
  14. TRANXILIUM [Concomitant]
     Route: 065
  15. CALCIUM [Concomitant]
     Indication: HYPOCALCAEMIA
     Route: 065
  16. ACETYLSALICYLIC ACID [Concomitant]
     Route: 065
  17. CLEXANE [Concomitant]
     Route: 065
     Dates: start: 20120908

REACTIONS (5)
  - Haemorrhage [Unknown]
  - Haematoma [Unknown]
  - Blood disorder [Unknown]
  - Hypertension [Unknown]
  - Post procedural haemorrhage [Recovered/Resolved]
